FAERS Safety Report 6120973-9 (Version None)
Quarter: 2009Q1

REPORT INFORMATION
  Report Type: 
  Country: None (occurrence: None)
  Receive Date: 20090317
  Receipt Date: 20090309
  Transmission Date: 20090719
  Serious: Yes (Death, Congenital Anomaly, Other)
  Sender: FDA-Public Use
  Company Number: US-ELI_LILLY_AND_COMPANY-US200812005435

PATIENT
  Sex: Female

DRUGS (7)
  1. CYMBALTA [Suspect]
     Route: 064
  2. VICODIN [Concomitant]
     Route: 064
  3. PRENATAL VITAMINS                  /01549301/ [Concomitant]
     Route: 064
  4. ALBUTEROL SULFATE [Concomitant]
     Route: 064
  5. FOLIC ACID [Concomitant]
     Route: 064
  6. WELLBUTRIN XL [Concomitant]
     Route: 064
  7. AMOXICILLIN                        /00249601/ [Concomitant]
     Route: 064

REACTIONS (11)
  - ANAL ATRESIA [None]
  - CONGENITAL NOSE MALFORMATION [None]
  - DEATH NEONATAL [None]
  - DRUG EXPOSURE DURING PREGNANCY [None]
  - FOETAL DISTRESS SYNDROME [None]
  - MECONIUM STAIN [None]
  - POLYDACTYLY [None]
  - POLYHYDRAMNIOS [None]
  - PREMATURE BABY [None]
  - SINGLE UMBILICAL ARTERY [None]
  - SMALL FOR DATES BABY [None]
